FAERS Safety Report 6276451-X (Version None)
Quarter: 2009Q3

REPORT INFORMATION
  Report Type: 
  Country: None (occurrence: None)
  Receive Date: 20090717
  Receipt Date: 20090717
  Transmission Date: 20100115
  Serious: Yes (Disabling)
  Sender: FDA-Public Use
  Company Number: None

PATIENT
  Age: 73 Year
  Sex: Male
  Weight: 77.3 kg

DRUGS (1)
  1. CIPROFLOXIN 500 MG GENERIC [Suspect]
     Indication: URETHRITIS NONINFECTIVE
     Dosage: 500MG 2X 10 DAYS
     Dates: start: 20090604, end: 20090614

REACTIONS (6)
  - INSOMNIA [None]
  - JOINT CREPITATION [None]
  - PAIN IN EXTREMITY [None]
  - TENDON DISORDER [None]
  - THERAPEUTIC AGENT TOXICITY [None]
  - TINNITUS [None]
